FAERS Safety Report 10744306 (Version 1)
Quarter: 2015Q1

REPORT INFORMATION
  Report Type: Spontaneous
  Country: US (occurrence: None)
  Receive Date: 20150126
  Receipt Date: 20150126
  Transmission Date: 20150721
  Serious: Yes (Other)
  Sender: FDA-Public Use
  Company Number: None

PATIENT
  Age: 24 Year
  Sex: Female
  Weight: 56.7 kg

DRUGS (1)
  1. AMPHETAMINE/DEXTROAMPHETAMINE [Suspect]
     Active Substance: AMPHETAMINE\DEXTROAMPHETAMINE
     Indication: ATTENTION DEFICIT/HYPERACTIVITY DISORDER
     Dosage: 1 PILL SPLIT IN HALF, AM, PM ONCE DAILY TAKEN BY MOUTH
     Route: 048
     Dates: start: 20150123, end: 20150124

REACTIONS (5)
  - Dyspepsia [None]
  - Rash [None]
  - Product substitution issue [None]
  - Migraine [None]
  - Malaise [None]

NARRATIVE: CASE EVENT DATE: 20150123
